FAERS Safety Report 19741673 (Version 6)
Quarter: 2022Q1

REPORT INFORMATION
  Report Type: Report from Study
  Country: US (occurrence: US)
  Receive Date: 20210825
  Receipt Date: 20220316
  Transmission Date: 20220423
  Serious: No
  Sender: FDA-Public Use
  Company Number: NVSC2021US190513

PATIENT
  Sex: Female

DRUGS (1)
  1. ENTRESTO [Suspect]
     Active Substance: SACUBITRIL\VALSARTAN
     Indication: Product used for unknown indication
     Dosage: UNK
     Route: 065

REACTIONS (9)
  - Stress [Unknown]
  - Head injury [Unknown]
  - Complex regional pain syndrome [Unknown]
  - Accident [Unknown]
  - Abdominal discomfort [Unknown]
  - Fall [Unknown]
  - Pain in extremity [Unknown]
  - Extremity contracture [Unknown]
  - Concussion [Unknown]
